FAERS Safety Report 19997704 (Version 1)
Quarter: 2021Q4

REPORT INFORMATION
  Report Type: Other
  Country: US (occurrence: US)
  Receive Date: 20211026
  Receipt Date: 20211026
  Transmission Date: 20220303
  Serious: Yes (Hospitalization)
  Sender: FDA-Public Use
  Company Number: US-ROCHE-2938185

PATIENT
  Age: 23 Year
  Sex: Male

DRUGS (7)
  1. OCRELIZUMAB [Suspect]
     Active Substance: OCRELIZUMAB
     Indication: Multiple sclerosis
     Route: 042
     Dates: start: 20200629, end: 20200713
  2. CHOLECALCIFEROL [Concomitant]
     Active Substance: CHOLECALCIFEROL
     Dates: start: 2019
  3. CULTURELLE [Concomitant]
     Active Substance: LACTOBACILLUS RHAMNOSUS
  4. MAGNESIUM GLYCINATE [Concomitant]
     Active Substance: MAGNESIUM GLYCINATE
  5. RIBOFLAVIN [Concomitant]
     Active Substance: RIBOFLAVIN
  6. TAMSULOSIN [Concomitant]
     Active Substance: TAMSULOSIN
     Indication: Multiple sclerosis
     Dates: start: 20200629
  7. ALFUZOSIN [Concomitant]
     Active Substance: ALFUZOSIN
     Indication: Multiple sclerosis
     Dates: start: 20210722

REACTIONS (1)
  - COVID-19 pneumonia [Recovered/Resolved with Sequelae]

NARRATIVE: CASE EVENT DATE: 20210801
